FAERS Safety Report 24889212 (Version 1)
Quarter: 2025Q1

REPORT INFORMATION
  Report Type: Spontaneous
  Country: US (occurrence: None)
  Receive Date: 20250125
  Receipt Date: 20250125
  Transmission Date: 20250408
  Serious: Yes (Hospitalization)
  Sender: FDA-CTU
  Company Number: None

PATIENT
  Sex: Male
  Weight: 92.4 kg

DRUGS (2)
  1. METHOTREXATE [Suspect]
     Active Substance: METHOTREXATE
  2. PONATINIB [Suspect]
     Active Substance: PONATINIB

REACTIONS (5)
  - Blood creatinine increased [None]
  - Pleural effusion [None]
  - Confusional state [None]
  - Disorientation [None]
  - Pyrexia [None]

NARRATIVE: CASE EVENT DATE: 20250111
